FAERS Safety Report 9403272 (Version 2)
Quarter: 2013Q3

REPORT INFORMATION
  Report Type: Spontaneous
  Country: JP (occurrence: JP)
  Receive Date: 20130712
  Receipt Date: 20130807
  Transmission Date: 20140515
  Serious: Yes (Hospitalization)
  Sender: FDA-Public Use
  Company Number: TPA2013A06519

PATIENT
  Age: 57 Year
  Sex: Female

DRUGS (14)
  1. FEBURIC [Suspect]
     Indication: HYPERURICAEMIA
     Route: 048
     Dates: start: 20130604, end: 20130611
  2. TAKEPRON (LANSOPRAZOLE) [Concomitant]
  3. THYRADIN S (LEVOTHYROXINE SODIUM) [Concomitant]
  4. WARFARIN (WARFARIN) [Concomitant]
  5. EDIROL (VITAMIN D AND ANALOGUES) [Concomitant]
  6. BASEN OD (VOGLIBOSE) [Concomitant]
  7. EQUA (VILDAGLIPTIN) [Concomitant]
  8. LENDORMIN (BROTIZOLAM) [Concomitant]
  9. ROHYPNOL (FLUNITRAZEPAM) [Concomitant]
  10. LIVALO (PITAVASTATIN CALCIUM) [Concomitant]
  11. BREDININ (MIZORIBINE) [Concomitant]
  12. MICARDIS (TELMISARTAN) [Concomitant]
  13. METHYCOBAL (MECOBALAMIN) [Concomitant]
  14. PREDONINE (PREDNISOLONE) PER ORAL NOS [Concomitant]

REACTIONS (3)
  - Agranulocytosis [None]
  - Pyrexia [None]
  - Malaise [None]
